FAERS Safety Report 12379045 (Version 2)
Quarter: 2016Q3

REPORT INFORMATION
  Report Type: Spontaneous
  Country: US (occurrence: US)
  Receive Date: 20160517
  Receipt Date: 20160901
  Transmission Date: 20161109
  Serious: No
  Sender: FDA-Public Use
  Company Number: US-RELYPSA-RLY2016000301

PATIENT
  Sex: Male

DRUGS (6)
  1. NEPHROCAPS                         /01801401/ [Concomitant]
  2. VELTASSA [Suspect]
     Active Substance: PATIROMER
     Indication: HYPERKALAEMIA
     Dosage: 8.4 G, QD
     Route: 048
     Dates: start: 20160316
  3. RENVELA [Concomitant]
     Active Substance: SEVELAMER CARBONATE
  4. CALCITRIOL. [Concomitant]
     Active Substance: CALCITRIOL
  5. LISINOPRIL. [Concomitant]
     Active Substance: LISINOPRIL
  6. ALLOPURINOL. [Concomitant]
     Active Substance: ALLOPURINOL

REACTIONS (3)
  - Pain [Unknown]
  - Decreased appetite [Unknown]
  - Constipation [Unknown]
